FAERS Safety Report 20660555 (Version 1)
Quarter: 2022Q1

REPORT INFORMATION
  Report Type: Spontaneous
  Country: US (occurrence: US)
  Receive Date: 20220331
  Receipt Date: 20220331
  Transmission Date: 20220423
  Serious: No
  Sender: FDA-Public Use
  Company Number: ae004US22

PATIENT
  Age: 45 Year
  Sex: Male
  Weight: 136.08 kg

DRUGS (2)
  1. ASCLERA [Suspect]
     Active Substance: POLIDOCANOL
     Indication: Sclerotherapy
     Dates: start: 202108, end: 202108
  2. ASCLERA [Suspect]
     Active Substance: POLIDOCANOL

REACTIONS (3)
  - Dizziness [Recovering/Resolving]
  - Heart rate increased [Recovering/Resolving]
  - Hypertension [Recovering/Resolving]

NARRATIVE: CASE EVENT DATE: 20210801
